FAERS Safety Report 20440996 (Version 1)
Quarter: 2022Q1

REPORT INFORMATION
  Report Type: Spontaneous
  Country: US (occurrence: US)
  Receive Date: 20220208
  Receipt Date: 20220208
  Transmission Date: 20220423
  Serious: Yes (Other)
  Sender: FDA-Public Use
  Company Number: US-STRIDES ARCOLAB LIMITED-2022SP000929

PATIENT
  Age: 55 Year
  Sex: Female

DRUGS (6)
  1. CAPTOPRIL [Suspect]
     Active Substance: CAPTOPRIL
     Indication: Nephrolithiasis
     Dosage: UNK
     Route: 065
  2. CAPTOPRIL [Suspect]
     Active Substance: CAPTOPRIL
     Indication: Cystinuria
  3. PENICILLAMINE [Suspect]
     Active Substance: PENICILLAMINE
     Indication: Nephrolithiasis
     Dosage: UNK
     Route: 065
  4. PENICILLAMINE [Suspect]
     Active Substance: PENICILLAMINE
     Indication: Cystinuria
  5. TIOPRONIN [Suspect]
     Active Substance: TIOPRONIN
     Indication: Nephrolithiasis
     Dosage: UNK
     Route: 065
  6. TIOPRONIN [Suspect]
     Active Substance: TIOPRONIN
     Indication: Cystinuria

REACTIONS (3)
  - Elastosis perforans [Recovered/Resolved]
  - Pseudoxanthoma elasticum-like syndrome [Recovered/Resolved]
  - Off label use [Unknown]
